FAERS Safety Report 17510321 (Version 1)
Quarter: 2020Q1

REPORT INFORMATION
  Report Type: Spontaneous
  Country: US (occurrence: US)
  Receive Date: 20200306
  Receipt Date: 20200306
  Transmission Date: 20200409
  Serious: Yes (Death, Hospitalization, Other)
  Sender: FDA-Public Use
  Company Number: US-HIKMA PHARMACEUTICALS USA INC.-US-H14001-20-50766

PATIENT
  Age: 49 Year
  Sex: Male

DRUGS (4)
  1. ETOPOSIDE. [Suspect]
     Active Substance: ETOPOSIDE
     Indication: HIGH-GRADE B-CELL LYMPHOMA
     Dosage: ()CYCLICAL
     Dates: start: 201711
  2. IFOSFAMIDE. [Suspect]
     Active Substance: IFOSFAMIDE
     Indication: HIGH-GRADE B-CELL LYMPHOMA
     Dosage: ()CYCLICAL
     Route: 065
     Dates: start: 201711
  3. METHOTREXATE. [Suspect]
     Active Substance: METHOTREXATE
     Indication: HIGH-GRADE B-CELL LYMPHOMA
     Dosage: ()CYCLICAL
     Route: 065
     Dates: start: 201711
  4. CYTARABINE. [Suspect]
     Active Substance: CYTARABINE
     Indication: HIGH-GRADE B-CELL LYMPHOMA
     Dosage: ()CYCLICAL
     Dates: start: 201711

REACTIONS (8)
  - Respiratory failure [Unknown]
  - Pneumonia bacterial [Unknown]
  - Subarachnoid haemorrhage [Unknown]
  - Febrile neutropenia [Unknown]
  - Sepsis [Unknown]
  - Viral infection [Unknown]
  - Thrombocytopenia [Unknown]
  - Escherichia bacteraemia [Unknown]

NARRATIVE: CASE EVENT DATE: 2017
